FAERS Safety Report 5854907-9 (Version None)
Quarter: 2008Q3

REPORT INFORMATION
  Report Type: 
  Country: None (occurrence: None)
  Receive Date: 20080822
  Receipt Date: 20080305
  Transmission Date: 20090109
  Serious: No
  Sender: FDA-Public Use
  Company Number: US-ABBOTT-08P-163-0441409-00

PATIENT
  Sex: Female
  Weight: 4.994 kg

DRUGS (4)
  1. SYNTHROID [Suspect]
     Indication: DRUG EXPOSURE VIA BREAST MILK
     Route: 063
  2. SYNTHROID [Suspect]
     Indication: DRUG EXPOSURE DURING PREGNANCY
  3. UNKNOWN PRE-NATAL VITAMINS [Suspect]
     Indication: DRUG EXPOSURE VIA BREAST MILK
     Route: 063
  4. UNKNOWN PRE-NATAL VITAMINS [Suspect]
     Indication: DRUG EXPOSURE DURING PREGNANCY

REACTIONS (4)
  - COLITIS [None]
  - DIARRHOEA [None]
  - DRUG EXPOSURE VIA BREAST MILK [None]
  - HAEMATOCHEZIA [None]
